FAERS Safety Report 4890948-6 (Version None)
Quarter: 2006Q1

REPORT INFORMATION
  Report Type: 
  Country: None (occurrence: None)
  Receive Date: 20060125
  Receipt Date: 20060112
  Transmission Date: 20060701
  Serious: Yes (Other)
  Sender: FDA-Public Use
  Company Number: GB-JNJFOC-20060104443

PATIENT
  Age: 44 Year
  Sex: Male
  Weight: 63.5 kg

DRUGS (3)
  1. ZYDOL [Suspect]
     Indication: SCIATICA
     Route: 048
     Dates: start: 20051229, end: 20051230
  2. ESCITALOPRAM OXALATE [Concomitant]
     Indication: DEPRESSION
     Route: 065
  3. ESCITALOPRAM OXALATE [Concomitant]
     Indication: ANXIETY
     Route: 065

REACTIONS (2)
  - HALLUCINATION, AUDITORY [None]
  - HALLUCINATION, VISUAL [None]
